FAERS Safety Report 21526344 (Version 2)
Quarter: 2024Q4

REPORT INFORMATION
  Report Type: Spontaneous
  Country: US (occurrence: US)
  Receive Date: 20221031
  Receipt Date: 20241105
  Transmission Date: 20250115
  Serious: No
  Sender: UCB
  Company Number: US-UCBSA-2021059991

PATIENT
  Sex: Female

DRUGS (6)
  1. VIMPAT [Suspect]
     Active Substance: LACOSAMIDE
     Indication: Product used for unknown indication
     Dosage: 100MG IN AM AND 150MG IN PM, 2X/DAY (BID)
     Route: 048
  2. ONFI [Concomitant]
     Active Substance: CLOBAZAM
     Indication: Product used for unknown indication
  3. FEXOR XR [Concomitant]
     Indication: Product used for unknown indication
  4. VITAMIN D2 [Concomitant]
     Active Substance: ERGOCALCIFEROL
     Indication: Product used for unknown indication
  5. LEVOTHYROXINE [Concomitant]
     Active Substance: LEVOTHYROXINE
     Indication: Product used for unknown indication
  6. ULORIC [Concomitant]
     Active Substance: FEBUXOSTAT
     Indication: Product used for unknown indication

REACTIONS (1)
  - Product use issue [Unknown]
